FAERS Safety Report 10601487 (Version 1)
Quarter: 2014Q4

REPORT INFORMATION
  Report Type: Spontaneous
  Country: ES (occurrence: ES)
  Receive Date: 20141124
  Receipt Date: 20141124
  Transmission Date: 20150529
  Serious: Yes (Death, Other)
  Sender: FDA-Public Use
  Company Number: ES-PFIZER INC-2014321337

PATIENT
  Age: 84 Year
  Sex: Female

DRUGS (21)
  1. CEFTAZIDIM [Concomitant]
     Active Substance: CEFTAZIDIME
     Dosage: UNK
     Dates: start: 20140929, end: 20141013
  2. MIDAZOLAM [Concomitant]
     Active Substance: MIDAZOLAM\MIDAZOLAM HYDROCHLORIDE
     Dosage: UNK
     Dates: start: 20140927, end: 20141001
  3. NOLOTIL [Concomitant]
     Active Substance: METAMIZOLE
     Dosage: UNK
     Dates: start: 20140926, end: 20140927
  4. SEGURIL [Suspect]
     Active Substance: FUROSEMIDE
     Indication: RENAL FAILURE
     Dosage: 100 MG, 1X/DAY
     Route: 042
     Dates: start: 20140928, end: 20140929
  5. FLUCONAZOL [Concomitant]
     Active Substance: FLUCONAZOLE
     Dosage: UNK
     Dates: start: 20140929, end: 20141009
  6. DOBUTAMINE [Concomitant]
     Active Substance: DOBUTAMINE\DOBUTAMINE HYDROCHLORIDE
     Dosage: UNK
     Dates: start: 20140927, end: 20140928
  7. BICARBONATE [Concomitant]
     Active Substance: BICARBONATE ION
     Dosage: UNK
     Dates: start: 20140919, end: 20140926
  8. FLAGYL [Concomitant]
     Active Substance: METRONIDAZOLE\METRONIDAZOLE HYDROCHLORIDE
     Dosage: UNK
     Dates: start: 20140929, end: 20141013
  9. PANTOPRAZOLE [Suspect]
     Active Substance: PANTOPRAZOLE SODIUM
     Indication: GASTROINTESTINAL ULCER
     Dosage: 40 MG, 1X/DAY
     Route: 042
     Dates: start: 20140910, end: 20141022
  10. CLEXANE [Concomitant]
     Active Substance: ENOXAPARIN SODIUM
     Dosage: UNK
     Dates: start: 20140902, end: 20141022
  11. POTASION [Concomitant]
     Dosage: UNK
     Dates: start: 20140925, end: 20140927
  12. PRIMPERAN [Concomitant]
     Active Substance: METOCLOPRAMIDE HYDROCHLORIDE
     Dosage: UNK
     Dates: start: 20140926, end: 20140927
  13. PARACETAMOL [Concomitant]
     Active Substance: ACETAMINOPHEN
     Dosage: UNK
     Dates: start: 20140916, end: 20140927
  14. MEROPENEM. [Concomitant]
     Active Substance: MEROPENEM
     Dosage: UNK
     Dates: start: 20140911, end: 20140929
  15. ACTOCORTINA [Concomitant]
     Dosage: UNK
     Dates: start: 20140912, end: 20140914
  16. LORAZEPAM. [Concomitant]
     Active Substance: LORAZEPAM
     Dosage: UNK
     Dates: start: 20140926, end: 20140927
  17. MORFINE [Concomitant]
     Active Substance: MORPHINE
     Dosage: UNK
     Dates: start: 20140927, end: 20141013
  18. ARIXTRA [Concomitant]
     Active Substance: FONDAPARINUX SODIUM
     Dosage: UNK
     Dates: start: 20140929, end: 20140929
  19. CUBICIN [Suspect]
     Active Substance: DAPTOMYCIN
     Dosage: 280 MG, 1X/DAY
     Route: 042
     Dates: start: 20140922, end: 20140929
  20. VANCOMYCINE [Concomitant]
     Active Substance: VANCOMYCIN
     Dosage: UNK
     Dates: start: 20140927
  21. NORAGES [Concomitant]
     Dosage: UNK
     Dates: start: 20140927, end: 20141013

REACTIONS (2)
  - Multi-organ failure [Fatal]
  - Thrombocytopenia [Recovered/Resolved]

NARRATIVE: CASE EVENT DATE: 2014
